FAERS Safety Report 8523488 (Version 7)
Quarter: 2013Q1

REPORT INFORMATION
  Report Type: Spontaneous
  Country: US (occurrence: US)
  Receive Date: 20120420
  Receipt Date: 20130117
  Transmission Date: 20140127
  Serious: Yes (Death)
  Sender: FDA-Public Use
  Company Number: US-JNJFOC-20120407053

PATIENT
  Age: 5 Year
  Sex: Female
  Weight: 20.87 kg

DRUGS (5)
  1. ZYRTEC [Suspect]
     Route: 065
  2. ZYRTEC [Suspect]
     Indication: INFLUENZA LIKE ILLNESS
     Route: 065
  3. ZYRTEC [Suspect]
     Indication: INFLUENZA LIKE ILLNESS
     Route: 065
  4. DELSYM [Suspect]
     Indication: INFLUENZA LIKE ILLNESS
     Route: 065
  5. TYLENOL [Concomitant]
     Route: 065

REACTIONS (5)
  - Accidental overdose [Fatal]
  - Pain in extremity [Unknown]
  - Muscle spasms [Unknown]
  - Toxicity to various agents [Fatal]
  - Off label use [Unknown]
